FAERS Safety Report 6647104-0 (Version None)
Quarter: 2010Q1

REPORT INFORMATION
  Report Type: 
  Country: None (occurrence: None)
  Receive Date: 20100322
  Receipt Date: 20100322
  Transmission Date: 20100710
  Serious: Yes (Hospitalization)
  Sender: FDA-Public Use
  Company Number: None

PATIENT
  Age: 73 Year
  Sex: Male
  Weight: 84.3 kg

DRUGS (2)
  1. AMIODARONE HCL [Suspect]
     Indication: ATRIAL FIBRILLATION
     Dosage: 200 MG EVERY DAY PO
     Route: 048
     Dates: start: 20091231, end: 20100310
  2. ROSUVASTATIN [Suspect]
     Indication: HYPERLIPIDAEMIA
     Dosage: 20 MG EVERY DAY PO
     Route: 048
     Dates: start: 20100129

REACTIONS (6)
  - CARDIAC FAILURE CONGESTIVE [None]
  - HEPATIC CONGESTION [None]
  - INTERNATIONAL NORMALISED RATIO ABNORMAL [None]
  - LIVER FUNCTION TEST ABNORMAL [None]
  - PNEUMONIA [None]
  - SEPSIS [None]
